FAERS Safety Report 14300292 (Version 1)
Quarter: 2017Q4

REPORT INFORMATION
  Report Type: Spontaneous
  Country: US (occurrence: US)
  Receive Date: 20171219
  Receipt Date: 20171219
  Transmission Date: 20180321
  Serious: No
  Sender: FDA-Public Use
  Company Number: US-PFIZER INC-2017534632

PATIENT
  Sex: Male

DRUGS (1)
  1. XALKORI [Suspect]
     Active Substance: CRIZOTINIB
     Indication: NON-SMALL CELL LUNG CANCER METASTATIC
     Dosage: UNK
     Dates: start: 201603

REACTIONS (7)
  - Nausea [Unknown]
  - Oedema peripheral [Unknown]
  - Liver function test increased [Unknown]
  - Aphonia [Unknown]
  - Vocal cord disorder [Unknown]
  - Dyspnoea [Unknown]
  - Blood testosterone decreased [Unknown]
